APPROVED DRUG PRODUCT: PROMETHAZINE HYDROCHLORIDE
Active Ingredient: PROMETHAZINE HYDROCHLORIDE
Strength: 12.5MG 
Dosage Form/Route: SUPPOSITORY;RECTAL
Application: A216446 | Product #001 | TE Code: AB
Applicant: ANNORA PHARMA PRIVATE LTD
Approved: Nov 2, 2022 | RLD: No | RS: No | Type: RX